FAERS Safety Report 4627585-4 (Version None)
Quarter: 2005Q2

REPORT INFORMATION
  Report Type: 
  Country: None (occurrence: None)
  Receive Date: 20050405
  Receipt Date: 20050322
  Transmission Date: 20051028
  Serious: Yes (Hospitalization)
  Sender: FDA-Public Use
  Company Number: 26421

PATIENT
  Age: 63 Year
  Sex: Male

DRUGS (3)
  1. ALDARA [Suspect]
     Indication: ACTINIC KERATOSIS
     Dosage: (1 IN 1 DAY(S)), TOPICAL
     Route: 061
     Dates: start: 20050304
  2. MULTI-VITAMIN [Concomitant]
  3. ASPIRIN [Concomitant]

REACTIONS (3)
  - APPLICATION SITE REACTION [None]
  - GRAND MAL CONVULSION [None]
  - MALAISE [None]
